FAERS Safety Report 7405119-9 (Version None)
Quarter: 2011Q1

REPORT INFORMATION
  Report Type: 
  Country: None (occurrence: None)
  Receive Date: 20110330
  Receipt Date: 20110314
  Transmission Date: 20110831
  Serious: Yes (Hospitalization, Other)
  Sender: FDA-Public Use
  Company Number: 2009US1004332

PATIENT
  Age: 59 Year
  Sex: Female
  Weight: 72.1219 kg

DRUGS (16)
  1. DULCOLAX [Suspect]
     Indication: COLONOSCOPY
     Dosage: 2 UNITS; TOTAL; PO
     Route: 048
     Dates: start: 20080224, end: 20080224
  2. PHOSPHOSODA FLAVOR NOT SPECIFIED [Suspect]
     Indication: COLONOSCOPY
     Dosage: 45 ML;X1;PO, 45ML;X1;PO
     Route: 048
     Dates: start: 20080225, end: 20080225
  3. PHOSPHOSODA FLAVOR NOT SPECIFIED [Suspect]
     Indication: COLONOSCOPY
     Dosage: 45 ML;X1;PO, 45ML;X1;PO
     Route: 048
     Dates: start: 20080225, end: 20080225
  4. ATARAX [Concomitant]
  5. ALLEGRA [Concomitant]
  6. PRILOSEC [Concomitant]
  7. CALCIUM W/VITAMIN D /00188401/ [Concomitant]
  8. ALBUTEROL [Concomitant]
  9. DEMEROL [Concomitant]
  10. FLUVOXAMINE [Concomitant]
  11. BONIVA [Concomitant]
  12. ZOCOR [Concomitant]
  13. LISINOPRIL [Concomitant]
  14. VITAMIN C /00008001/ [Concomitant]
  15. VITAMIN B COMPLEX /00003501/ [Concomitant]
  16. VERSED [Concomitant]

REACTIONS (9)
  - HYPOTENSION [None]
  - MALAISE [None]
  - ANAEMIA [None]
  - DIARRHOEA [None]
  - DEHYDRATION [None]
  - RENAL FAILURE ACUTE [None]
  - PNEUMONIA VIRAL [None]
  - BILIARY TRACT DISORDER [None]
  - SALIVARY HYPERSECRETION [None]
